FAERS Safety Report 19792553 (Version 2)
Quarter: 2021Q3

REPORT INFORMATION
  Report Type: Spontaneous
  Country: JP (occurrence: JP)
  Receive Date: 20210906
  Receipt Date: 20210915
  Transmission Date: 20211014
  Serious: Yes (Other)
  Sender: FDA-Public Use
  Company Number: JP-GLAXOSMITHKLINE-JP2021JPN183648

PATIENT
  Age: 82 Year
  Sex: Female

DRUGS (13)
  1. ROSUVASTATIN CALCIUM. [Suspect]
     Active Substance: ROSUVASTATIN CALCIUM
     Dosage: UNK
  2. PREDONINE [Concomitant]
     Active Substance: PREDNISOLONE
     Indication: POLYMYALGIA RHEUMATICA
     Dosage: UNK
     Dates: start: 201906
  3. CELECOX [Suspect]
     Active Substance: CELECOXIB
     Dosage: UNK
  4. RHEUMATREX [Concomitant]
     Active Substance: METHOTREXATE SODIUM
     Indication: POLYMYALGIA RHEUMATICA
     Dosage: UNK
     Dates: start: 202010
  5. ACTEMRA [Concomitant]
     Active Substance: TOCILIZUMAB
     Indication: POLYMYALGIA RHEUMATICA
     Dosage: UNK
     Dates: start: 202002
  6. UNASYN (SULTAMICILLIN TOSILATE) [Concomitant]
     Indication: OPPORTUNISTIC INFECTION PROPHYLAXIS
     Dosage: UNK
  7. CARBOCISTEINE [Suspect]
     Active Substance: CARBOCYSTEINE
     Dosage: UNK
  8. POLAPREZINC [Suspect]
     Active Substance: POLAPREZINC
     Dosage: UNK
  9. CYMBALTA [Suspect]
     Active Substance: DULOXETINE HYDROCHLORIDE
     Dosage: UNK
  10. PREDONINE [Concomitant]
     Active Substance: PREDNISOLONE
     Dosage: 5 MG
  11. ZOVIRAX [Suspect]
     Active Substance: ACYCLOVIR
     Indication: HERPES ZOSTER
     Dosage: 500 MG
  12. LAFUTIDINE [Suspect]
     Active Substance: LAFUTIDINE
     Dosage: UNK
  13. LEUCOVORIN. [Concomitant]
     Active Substance: LEUCOVORIN
     Indication: AGRANULOCYTOSIS
     Dosage: UNK

REACTIONS (1)
  - Drug-induced liver injury [Recovered/Resolved]
